FAERS Safety Report 6393302-3 (Version None)
Quarter: 2009Q4

REPORT INFORMATION
  Report Type: 
  Country: None (occurrence: None)
  Receive Date: 20091008
  Receipt Date: 20090923
  Transmission Date: 20100525
  Serious: Yes (Hospitalization)
  Sender: FDA-Public Use
  Company Number: PHHY2009CH42293

PATIENT
  Age: 66 Year
  Sex: Female

DRUGS (9)
  1. LOPRESSOR [Suspect]
     Indication: HYPERTENSION
     Dosage: 7 MG/DAY
     Route: 042
     Dates: start: 20090713, end: 20090713
  2. ISOSORBIDE DINITRATE [Concomitant]
  3. ENOXAPARIN SODIUM [Concomitant]
     Dosage: 20 MG, QD
     Route: 058
     Dates: start: 20090710
  4. BUPIVACAINE HCL AND EPINEPHRINE [Concomitant]
     Dosage: UNK
     Dates: start: 20090710
  5. ACETAMINOPHEN [Concomitant]
     Dosage: 1 MG, QID
     Route: 048
     Dates: start: 20090710
  6. DROPERIDOL [Concomitant]
     Dosage: 0.5 MG ONCE
     Dates: start: 20090713, end: 20090713
  7. ZOFRAN [Concomitant]
     Dosage: 2 MG
     Dates: start: 20090712, end: 20090713
  8. LASIX [Concomitant]
     Dosage: 10 MG, BID
     Route: 042
     Dates: start: 20090712, end: 20090713
  9. NORADRENALINE [Concomitant]
     Dosage: UNK
     Route: 042
     Dates: start: 20090711, end: 20090713

REACTIONS (2)
  - HYPOTENSION [None]
  - HYPOXIA [None]
